FAERS Safety Report 8280195-2 (Version None)
Quarter: 2012Q2

REPORT INFORMATION
  Report Type: 
  Country: None (occurrence: None)
  Receive Date: 20120412
  Receipt Date: 20110627
  Transmission Date: 20120825
  Serious: No
  Sender: FDA-Public Use
  Company Number: US-ASTRAZENECA-2011SE38654

PATIENT
  Sex: Female

DRUGS (2)
  1. ZOMETA [Concomitant]
  2. NEXIUM [Suspect]
     Indication: GASTROOESOPHAGEAL REFLUX DISEASE
     Route: 048
     Dates: start: 20110523

REACTIONS (4)
  - FREQUENT BOWEL MOVEMENTS [None]
  - FATIGUE [None]
  - THROAT IRRITATION [None]
  - BACK PAIN [None]
